FAERS Safety Report 21028587 (Version 1)
Quarter: 2022Q2

REPORT INFORMATION
  Report Type: Spontaneous
  Country: US (occurrence: US)
  Receive Date: 20220630
  Receipt Date: 20220630
  Transmission Date: 20220721
  Serious: No
  Sender: FDA-Public Use
  Company Number: US-Blueprint Medicines Corporation-230

PATIENT
  Sex: Female

DRUGS (2)
  1. AYVAKIT [Suspect]
     Active Substance: AVAPRITINIB
     Indication: Brain neoplasm malignant
     Dosage: 250MG DAILY
     Route: 048
     Dates: start: 20220519
  2. AYVAKIT [Suspect]
     Active Substance: AVAPRITINIB
     Dosage: 250MG DAILY
     Route: 048
     Dates: start: 20220519

REACTIONS (2)
  - Rhinitis allergic [Unknown]
  - Off label use [Unknown]
